FAERS Safety Report 8406824-8 (Version None)
Quarter: 2012Q2

REPORT INFORMATION
  Report Type: 
  Country: None (occurrence: None)
  Receive Date: 20120604
  Receipt Date: 20120531
  Transmission Date: 20120825
  Serious: No
  Sender: FDA-Public Use
  Company Number: US-BAYER-2012-054540

PATIENT
  Age: 21 Year
  Sex: Female

DRUGS (1)
  1. BETASERON [Suspect]
     Dosage: 1 ML, QOD
     Route: 058
     Dates: start: 20120501

REACTIONS (1)
  - INJECTION SITE HAEMATOMA [None]
